FAERS Safety Report 15946065 (Version 2)
Quarter: 2019Q1

REPORT INFORMATION
  Report Type: Report from Study
  Country: US (occurrence: US)
  Receive Date: 20190211
  Receipt Date: 20190211
  Transmission Date: 20190417
  Serious: Yes (Death)
  Sender: FDA-Public Use
  Company Number: US-ASTRAZENECA-2019SE22624

PATIENT
  Sex: Female
  Weight: 60.3 kg

DRUGS (9)
  1. TAGRISSO [Suspect]
     Active Substance: OSIMERTINIB
     Indication: LUNG NEOPLASM MALIGNANT
     Dosage: 40.0MG UNKNOWN
     Route: 048
     Dates: start: 20180728
  2. TAGRISSO [Suspect]
     Active Substance: OSIMERTINIB
     Indication: LUNG NEOPLASM MALIGNANT
     Dosage: 80.0MG UNKNOWN
     Route: 048
     Dates: start: 20180728
  3. TAGRISSO [Suspect]
     Active Substance: OSIMERTINIB
     Indication: LUNG NEOPLASM MALIGNANT
     Dosage: 40.0MG UNKNOWN
     Route: 048
  4. DECADRON [Concomitant]
     Active Substance: DEXAMETHASONE
  5. MULTIVIT/MIN [Concomitant]
     Active Substance: MINERALS\VITAMINS
  6. TAGRISSO [Suspect]
     Active Substance: OSIMERTINIB
     Indication: LUNG NEOPLASM MALIGNANT
     Dosage: 80.0MG UNKNOWN
     Route: 048
     Dates: start: 20181022
  7. NORVASC [Concomitant]
     Active Substance: AMLODIPINE BESYLATE
  8. COLACE [Concomitant]
     Active Substance: DOCUSATE SODIUM
  9. KEPPRA [Concomitant]
     Active Substance: LEVETIRACETAM

REACTIONS (3)
  - Constipation [Unknown]
  - Nausea [Unknown]
  - Death [Fatal]
